FAERS Safety Report 8826505 (Version 2)
Quarter: 2012Q4

REPORT INFORMATION
  Report Type: 
  Country: US (occurrence: US)
  Receive Date: 20121005
  Receipt Date: 20121115
  Transmission Date: 20130627
  Serious: Yes (Death)
  Sender: FDA-Public Use
  Company Number: US-PFIZER INC-2012243647

PATIENT
  Age: 67 Year
  Sex: Female

DRUGS (8)
  1. REVATIO [Suspect]
     Indication: PULMONARY HYPERTENSION
     Dosage: 20 mg, 3x/day
     Route: 048
     Dates: start: 20120419
  2. TORSEMIDE [Concomitant]
     Dosage: UNK
  3. SPIRIVA [Concomitant]
     Dosage: UNK
  4. SYMBICORT [Concomitant]
     Dosage: UNK
  5. ALBUTEROL [Concomitant]
     Dosage: UNK
  6. DALIRESP [Concomitant]
     Dosage: UNK
  7. ASA [Concomitant]
     Dosage: UNK
  8. SERTRALINE [Concomitant]
     Dosage: UNK

REACTIONS (1)
  - Death [Fatal]
